FAERS Safety Report 8048752-6 (Version None)
Quarter: 2012Q1

REPORT INFORMATION
  Report Type: 
  Country: None (occurrence: None)
  Receive Date: 20120110
  Receipt Date: 20111230
  Transmission Date: 20120608
  Serious: Yes (Hospitalization)
  Sender: FDA-Public Use
  Company Number: 1150574

PATIENT
  Age: 58 Year
  Sex: Female
  Weight: 24.4035 kg

DRUGS (16)
  1. (BEVACIZUMAB) [Suspect]
     Indication: PRODUCT USED FOR UNKNOWN INDICATION
     Dosage: INTRAVENOUS (NOT OTHERWISE SPECIFIED) ; 437.5 MG MILLIGRAM(S) INTRAVENOUS (NOT OTHERWISE SPECIFIED)
     Route: 042
     Dates: start: 20110517
  2. (BEVACIZUMAB) [Suspect]
     Indication: GASTRIC CANCER
     Dosage: INTRAVENOUS (NOT OTHERWISE SPECIFIED) ; 437.5 MG MILLIGRAM(S) INTRAVENOUS (NOT OTHERWISE SPECIFIED)
     Route: 042
     Dates: start: 20110517
  3. (BEVACIZUMAB) [Suspect]
     Indication: PRODUCT USED FOR UNKNOWN INDICATION
     Dosage: INTRAVENOUS (NOT OTHERWISE SPECIFIED) ; 437.5 MG MILLIGRAM(S) INTRAVENOUS (NOT OTHERWISE SPECIFIED)
     Route: 042
     Dates: start: 20110627
  4. (BEVACIZUMAB) [Suspect]
     Indication: GASTRIC CANCER
     Dosage: INTRAVENOUS (NOT OTHERWISE SPECIFIED) ; 437.5 MG MILLIGRAM(S) INTRAVENOUS (NOT OTHERWISE SPECIFIED)
     Route: 042
     Dates: start: 20110627
  5. EPIRUBICIN HYDROCHLORIDE [Suspect]
     Indication: PRODUCT USED FOR UNKNOWN INDICATION
     Dosage: INTRAVENOUS (NOT OTHERWISE SPECIFIED) ; 80 MILLIGRAM(S) INTRAVENOUS  (NOT OTHERWISE SPECIFIED)
     Route: 042
     Dates: start: 20110627
  6. EPIRUBICIN HYDROCHLORIDE [Suspect]
     Indication: GASTRIC CANCER
     Dosage: INTRAVENOUS (NOT OTHERWISE SPECIFIED) ; 80 MILLIGRAM(S) INTRAVENOUS  (NOT OTHERWISE SPECIFIED)
     Route: 042
     Dates: start: 20110627
  7. EPIRUBICIN HYDROCHLORIDE [Suspect]
     Indication: PRODUCT USED FOR UNKNOWN INDICATION
     Dosage: INTRAVENOUS (NOT OTHERWISE SPECIFIED) ; 80 MILLIGRAM(S) INTRAVENOUS  (NOT OTHERWISE SPECIFIED)
     Route: 042
     Dates: start: 20110517
  8. EPIRUBICIN HYDROCHLORIDE [Suspect]
     Indication: GASTRIC CANCER
     Dosage: INTRAVENOUS (NOT OTHERWISE SPECIFIED) ; 80 MILLIGRAM(S) INTRAVENOUS  (NOT OTHERWISE SPECIFIED)
     Route: 042
     Dates: start: 20110517
  9. CISPLATIN [Suspect]
     Indication: GASTRIC CANCER
     Dosage: INTRAVENOUS (NOT OTHERWISE SPECIFIED) ; 47 MG MILLIGRAM(S) INTRAVENOUS (NOT OTHERWISE SPECIFIED)
     Route: 042
     Dates: start: 20110517
  10. CISPLATIN [Suspect]
     Indication: PRODUCT USED FOR UNKNOWN INDICATION
     Dosage: INTRAVENOUS (NOT OTHERWISE SPECIFIED) ; 47 MG MILLIGRAM(S) INTRAVENOUS (NOT OTHERWISE SPECIFIED)
     Route: 042
     Dates: start: 20110517
  11. CISPLATIN [Suspect]
     Indication: GASTRIC CANCER
     Dosage: INTRAVENOUS (NOT OTHERWISE SPECIFIED) ; 47 MG MILLIGRAM(S) INTRAVENOUS (NOT OTHERWISE SPECIFIED)
     Route: 042
     Dates: start: 20110627
  12. CISPLATIN [Suspect]
     Indication: PRODUCT USED FOR UNKNOWN INDICATION
     Dosage: INTRAVENOUS (NOT OTHERWISE SPECIFIED) ; 47 MG MILLIGRAM(S) INTRAVENOUS (NOT OTHERWISE SPECIFIED)
     Route: 042
     Dates: start: 20110627
  13. CAPECITABINE [Suspect]
     Indication: GASTRIC CANCER
     Dosage: ORAL ; ORAL
     Route: 048
     Dates: start: 20110517
  14. CAPECITABINE [Suspect]
     Indication: PRODUCT USED FOR UNKNOWN INDICATION
     Dosage: ORAL ; ORAL
     Route: 048
     Dates: start: 20110517
  15. CAPECITABINE [Suspect]
     Indication: GASTRIC CANCER
     Dosage: ORAL ; ORAL
     Route: 048
     Dates: start: 20110627
  16. CAPECITABINE [Suspect]
     Indication: PRODUCT USED FOR UNKNOWN INDICATION
     Dosage: ORAL ; ORAL
     Route: 048
     Dates: start: 20110627

REACTIONS (4)
  - DIZZINESS [None]
  - PALPITATIONS [None]
  - DYSPNOEA [None]
  - PULMONARY EMBOLISM [None]
